FAERS Safety Report 21469680 (Version 3)
Quarter: 2022Q4

REPORT INFORMATION
  Report Type: Spontaneous
  Country: US (occurrence: US)
  Receive Date: 20221018
  Receipt Date: 20221108
  Transmission Date: 20230113
  Serious: Yes (Hospitalization)
  Sender: FDA-Public Use
  Company Number: US-JNJFOC-20221020338

PATIENT
  Sex: Female
  Weight: 91.254 kg

DRUGS (7)
  1. INVEGA HAFYERA [Suspect]
     Active Substance: PALIPERIDONE PALMITATE
     Indication: Schizoaffective disorder
     Route: 030
     Dates: start: 20220314, end: 2022
  2. INVEGA HAFYERA [Suspect]
     Active Substance: PALIPERIDONE PALMITATE
  3. LOSARTAN [Concomitant]
     Active Substance: LOSARTAN
     Indication: Blood pressure abnormal
     Route: 048
  4. PRAVASTATIN [Concomitant]
     Active Substance: PRAVASTATIN
     Indication: Blood cholesterol abnormal
     Route: 048
  5. METOPROLOL [Concomitant]
     Active Substance: METOPROLOL
     Route: 048
  6. IBUPROFEN [Concomitant]
     Active Substance: IBUPROFEN
     Route: 048
  7. MELATONIN [Concomitant]
     Active Substance: MELATONIN
     Indication: Sleep disorder
     Route: 048

REACTIONS (1)
  - Psychotic symptom [Unknown]

NARRATIVE: CASE EVENT DATE: 20220901
